FAERS Safety Report 11593309 (Version 1)
Quarter: 2015Q4

REPORT INFORMATION
  Report Type: Spontaneous
  Country: US (occurrence: US)
  Receive Date: 20151005
  Receipt Date: 20151005
  Transmission Date: 20160304
  Serious: No
  Sender: FDA-Public Use
  Company Number: CHPA2015US011665

PATIENT
  Age: 41 Year
  Sex: Male

DRUGS (2)
  1. VOLTAREN [Suspect]
     Active Substance: DICLOFENAC SODIUM
     Indication: BACK DISORDER
     Dosage: ABOUT A 2 INCH STRIP TWICE A DAY ON BACK
     Route: 061
     Dates: start: 2015
  2. VOLTAREN [Suspect]
     Active Substance: DICLOFENAC SODIUM
     Indication: RHEUMATOID ARTHRITIS
     Dosage: USE A LITTLE BIT ONCE OR TWICE A DAY ON KNEES AND HANDS
     Route: 061

REACTIONS (5)
  - Inappropriate schedule of drug administration [Unknown]
  - Back disorder [Not Recovered/Not Resolved]
  - Drug screen false positive [Unknown]
  - Drug administered at inappropriate site [Unknown]
  - Product use issue [Unknown]

NARRATIVE: CASE EVENT DATE: 2015
